FAERS Safety Report 4892731-4 (Version None)
Quarter: 2006Q1

REPORT INFORMATION
  Report Type: 
  Country: None (occurrence: None)
  Receive Date: 20060125
  Receipt Date: 20060125
  Transmission Date: 20060701
  Serious: Yes (Life-Threatening, Hospitalization)
  Sender: FDA-Public Use
  Company Number: None

PATIENT
  Sex: Male

DRUGS (17)
  1. WARFARIN [Suspect]
     Indication: THROMBOSIS PROPHYLAXIS
     Dosage: 7MG PO QD
     Route: 048
     Dates: start: 20050926
  2. ASPIRIN [Concomitant]
  3. ROSGLITAZONE [Concomitant]
  4. CAPTOPRIL [Concomitant]
  5. CELECOXIB [Concomitant]
  6. VENLAFAXINE HCL [Concomitant]
  7. FLURAZEPAM [Concomitant]
  8. GLYBURIDE [Concomitant]
  9. INSULIN [Concomitant]
  10. ATORVASTATIN CALCIUM [Concomitant]
  11. METHADONE [Concomitant]
  12. GABAPENTIN [Concomitant]
  13. TESTOSTERONE [Concomitant]
  14. VALPROATE SODIUM [Concomitant]
  15. BUPROPION [Concomitant]
  16. COLESEVELAM [Concomitant]
  17. AZITHROMYCIN [Concomitant]

REACTIONS (2)
  - DRUG INTERACTION [None]
  - INTERNATIONAL NORMALISED RATIO INCREASED [None]
